FAERS Safety Report 18025051 (Version 12)
Quarter: 2022Q4

REPORT INFORMATION
  Report Type: Spontaneous
  Country: US (occurrence: US)
  Receive Date: 20200715
  Receipt Date: 20221110
  Transmission Date: 20230113
  Serious: Yes (Hospitalization, Other)
  Sender: FDA-Public Use
  Company Number: US-PFIZER INC-2020270476

PATIENT
  Age: 82 Year
  Sex: Female
  Weight: 54.422 kg

DRUGS (1)
  1. XELJANZ XR [Suspect]
     Active Substance: TOFACITINIB CITRATE
     Dosage: 11 MG, DAILY
     Route: 048

REACTIONS (10)
  - Spinal operation [Unknown]
  - Illness [Unknown]
  - Spinal fracture [Unknown]
  - Clavicle fracture [Unknown]
  - Osteoporosis [Unknown]
  - Nervousness [Unknown]
  - Memory impairment [Unknown]
  - Malaise [Not Recovered/Not Resolved]
  - Illness [Not Recovered/Not Resolved]
  - Sensitivity to weather change [Unknown]

NARRATIVE: CASE EVENT DATE: 20210101
